FAERS Safety Report 9045079 (Version 1)
Quarter: 2013Q1

REPORT INFORMATION
  Report Type: Spontaneous
  Country: US (occurrence: US)
  Receive Date: 20130130
  Receipt Date: 20130130
  Transmission Date: 20140127
  Serious: Yes (Death)
  Sender: FDA-Public Use
  Company Number: PHHY2013US007179

PATIENT
  Age: 59 Year
  Sex: Male

DRUGS (7)
  1. METOPROLOL [Suspect]
  2. PROPRANOLOL [Suspect]
  3. MORPHINE [Suspect]
  4. ALPRAZOLAM [Suspect]
  5. MIRTAZAPINE [Suspect]
  6. HYDROMORPHONE [Suspect]
  7. DULOXETINE [Suspect]

REACTIONS (1)
  - Death [Fatal]
